FAERS Safety Report 10671772 (Version 2)
Quarter: 2014Q4

REPORT INFORMATION
  Report Type: Report from Study
  Country: CA (occurrence: CA)
  Receive Date: 20141223
  Receipt Date: 20141223
  Transmission Date: 20150529
  Serious: Yes (Disabling)
  Sender: FDA-Public Use
  Company Number: CA-EMD SERONO-7335797

PATIENT
  Age: 18 Year
  Sex: Male

DRUGS (3)
  1. HYDROCORTISONE. [Concomitant]
     Active Substance: HYDROCORTISONE
     Indication: ADRENAL INSUFFICIENCY
     Dosage: 10 MG AT 9 AM IN THE MORNING AND 5 MG AT 9 PM IN THE NIGHT.
     Route: 048
     Dates: start: 201404
  2. LEVOTHYROXINE [Concomitant]
     Active Substance: LEVOTHYROXINE
     Indication: HYPOTHYROIDISM
     Route: 048
     Dates: start: 201212
  3. SAIZEN [Suspect]
     Active Substance: SOMATROPIN
     Indication: GROWTH HORMONE DEFICIENCY
     Route: 058
     Dates: start: 20141110, end: 20141117

REACTIONS (1)
  - Deafness neurosensory [Recovered/Resolved]

NARRATIVE: CASE EVENT DATE: 20141113
